FAERS Safety Report 26118207 (Version 2)
Quarter: 2025Q4

REPORT INFORMATION
  Report Type: Spontaneous
  Country: EU (occurrence: EU)
  Receive Date: 20251203
  Receipt Date: 20251205
  Transmission Date: 20260118
  Serious: Yes (Other)
  Sender: MYLAN
  Company Number: EU-INCYTE CORPORATION-2025IN011003

PATIENT
  Age: 43 Year
  Sex: Female

DRUGS (24)
  1. IMATINIB [Suspect]
     Active Substance: IMATINIB
     Indication: Chronic myeloid leukaemia
     Dosage: UNK
  2. IMATINIB [Suspect]
     Active Substance: IMATINIB
     Dosage: UNK
     Route: 065
  3. IMATINIB [Suspect]
     Active Substance: IMATINIB
     Dosage: UNK
     Route: 065
  4. IMATINIB [Suspect]
     Active Substance: IMATINIB
     Dosage: UNK
  5. DASATINIB [Suspect]
     Active Substance: DASATINIB
     Indication: Chronic myeloid leukaemia
     Dosage: UNK
  6. DASATINIB [Suspect]
     Active Substance: DASATINIB
     Dosage: UNK
     Route: 065
  7. DASATINIB [Suspect]
     Active Substance: DASATINIB
     Dosage: UNK
     Route: 065
  8. DASATINIB [Suspect]
     Active Substance: DASATINIB
     Dosage: UNK
  9. ICLUSIG [Suspect]
     Active Substance: PONATINIB HYDROCHLORIDE
     Indication: Chronic myeloid leukaemia
     Dosage: UNK
  10. ICLUSIG [Suspect]
     Active Substance: PONATINIB HYDROCHLORIDE
     Dosage: UNK
     Route: 065
  11. ICLUSIG [Suspect]
     Active Substance: PONATINIB HYDROCHLORIDE
     Dosage: UNK
     Route: 065
  12. ICLUSIG [Suspect]
     Active Substance: PONATINIB HYDROCHLORIDE
     Dosage: UNK
  13. ASCIMINIB [Suspect]
     Active Substance: ASCIMINIB
     Indication: Chronic myeloid leukaemia
     Dosage: UNK
  14. ASCIMINIB [Suspect]
     Active Substance: ASCIMINIB
     Dosage: UNK
     Route: 065
  15. ASCIMINIB [Suspect]
     Active Substance: ASCIMINIB
     Dosage: UNK
     Route: 065
  16. ASCIMINIB [Suspect]
     Active Substance: ASCIMINIB
     Dosage: UNK
  17. NILOTINIB [Suspect]
     Active Substance: NILOTINIB
     Indication: Chronic myeloid leukaemia
     Dosage: UNK
  18. NILOTINIB [Suspect]
     Active Substance: NILOTINIB
     Dosage: UNK
     Route: 065
  19. NILOTINIB [Suspect]
     Active Substance: NILOTINIB
     Dosage: UNK
     Route: 065
  20. NILOTINIB [Suspect]
     Active Substance: NILOTINIB
     Dosage: UNK
  21. BOSUTINIB [Concomitant]
     Active Substance: BOSUTINIB
     Indication: Product used for unknown indication
     Dosage: UNK
  22. BOSUTINIB [Concomitant]
     Active Substance: BOSUTINIB
     Dosage: UNK
     Route: 065
  23. BOSUTINIB [Concomitant]
     Active Substance: BOSUTINIB
     Dosage: UNK
     Route: 065
  24. BOSUTINIB [Concomitant]
     Active Substance: BOSUTINIB
     Dosage: UNK

REACTIONS (12)
  - Blast crisis in myelogenous leukaemia [Unknown]
  - Graft versus host disease in eye [Unknown]
  - Pericardial effusion [Unknown]
  - Bradycardia [Unknown]
  - Gastrointestinal disorder [Unknown]
  - General physical health deterioration [Unknown]
  - Bone pain [Unknown]
  - Thyroiditis [Unknown]
  - Transaminases increased [Unknown]
  - Myalgia [Unknown]
  - Asthenia [Unknown]
  - Drug ineffective [Unknown]

NARRATIVE: CASE EVENT DATE: 20230401
